FAERS Safety Report 5923411-1 (Version None)
Quarter: 2008Q4

REPORT INFORMATION
  Report Type: 
  Country: None (occurrence: None)
  Receive Date: 20081020
  Receipt Date: 20080917
  Transmission Date: 20090506
  Serious: No
  Sender: FDA-Public Use
  Company Number: US-BAYER-200834046NA

PATIENT
  Age: 37 Year
  Sex: Female
  Weight: 59 kg

DRUGS (3)
  1. MIRENA [Suspect]
     Indication: ENDOMETRIOSIS
     Route: 015
     Dates: start: 20080601
  2. NEURONTIN [Concomitant]
  3. WELLBUTRIN [Concomitant]

REACTIONS (3)
  - DECREASED INTEREST [None]
  - DEPRESSION [None]
  - MALAISE [None]
